FAERS Safety Report 6993554-2 (Version None)
Quarter: 2010Q3

REPORT INFORMATION
  Report Type: 
  Country: None (occurrence: None)
  Receive Date: 20100917
  Receipt Date: 20100915
  Transmission Date: 20110219
  Serious: Yes (Hospitalization)
  Sender: FDA-Public Use
  Company Number: FR-WYE-G06677410

PATIENT
  Sex: Female

DRUGS (1)
  1. IBUPROFEN (ADVIL) [Suspect]
     Indication: PYREXIA
     Dosage: 2 INTAKES
     Route: 048
     Dates: start: 20050101, end: 20050101

REACTIONS (3)
  - CONDITION AGGRAVATED [None]
  - SKIN DISORDER [None]
  - VARICELLA [None]
